FAERS Safety Report 11973017 (Version 1)
Quarter: 2016Q1

REPORT INFORMATION
  Report Type: Spontaneous
  Country: CA (occurrence: CA)
  Receive Date: 20160128
  Receipt Date: 20160128
  Transmission Date: 20160526
  Serious: Yes (Hospitalization)
  Sender: FDA-Public Use
  Company Number: CA-TEVA-629089ACC

PATIENT
  Age: 70 Year
  Sex: Male
  Weight: 124 kg

DRUGS (19)
  1. ENOXAPARIN [Concomitant]
     Active Substance: ENOXAPARIN
  2. HALOPERIDOL. [Concomitant]
     Active Substance: HALOPERIDOL
  3. NITROGLYCERIN. [Concomitant]
     Active Substance: NITROGLYCERIN
  4. ONDANSETRON [Concomitant]
     Active Substance: ONDANSETRON
  5. SENNOSIDES. [Concomitant]
     Active Substance: SENNOSIDES
  6. SYMBICORT [Concomitant]
     Active Substance: BUDESONIDE\FORMOTEROL FUMARATE DIHYDRATE
  7. ASA [Concomitant]
     Active Substance: ASPIRIN
  8. LORAZEPAM. [Concomitant]
     Active Substance: LORAZEPAM
  9. DOCUSATE SODIUM. [Concomitant]
     Active Substance: DOCUSATE SODIUM
  10. CLOPIDOGREL [Concomitant]
     Active Substance: CLOPIDOGREL BISULFATE
  11. GLYCERIN. [Concomitant]
     Active Substance: GLYCERIN
  12. PREGABALIN. [Concomitant]
     Active Substance: PREGABALIN
  13. DILTIAZEM [Suspect]
     Active Substance: DILTIAZEM
     Indication: ANGINA PECTORIS
     Dosage: 120 MILLIGRAM DAILY;
     Route: 048
  14. LEVOTHYROXINE. [Concomitant]
     Active Substance: LEVOTHYROXINE
  15. ATORVASTATIN CALCIUM. [Concomitant]
     Active Substance: ATORVASTATIN CALCIUM
  16. DIMENHYDRINATE. [Concomitant]
     Active Substance: DIMENHYDRINATE
  17. TERBUTALINE [Concomitant]
     Active Substance: TERBUTALINE
  18. VENLAFAXINE XR [Concomitant]
     Active Substance: VENLAFAXINE HYDROCHLORIDE
  19. BRILINTA [Suspect]
     Active Substance: TICAGRELOR
     Dosage: 180 MILLIGRAM DAILY;
     Route: 048

REACTIONS (6)
  - Toxic epidermal necrolysis [Unknown]
  - Blister [Unknown]
  - Dysphagia [Unknown]
  - Erythema [Unknown]
  - Vision blurred [Unknown]
  - Pyrexia [Unknown]
